FAERS Safety Report 15704453 (Version 1)
Quarter: 2018Q4

REPORT INFORMATION
  Report Type: Report from Study
  Country: KR (occurrence: KR)
  Receive Date: 20181210
  Receipt Date: 20181210
  Transmission Date: 20190205
  Serious: Yes (Other)
  Sender: FDA-Public Use
  Company Number: KR-ROCHE-2221608

PATIENT
  Age: 56 Year
  Sex: Female
  Weight: 60 kg

DRUGS (12)
  1. PERTUZUMAB. [Suspect]
     Active Substance: PERTUZUMAB
     Dosage: MAINTAINANCE DOSE?NEXT DOSE 420 MG OF PERTUZUMAB ON 05/DEC/2017, 28/DEC/2017, 18/JAN/2018, 08/FEB/20
     Route: 065
     Dates: start: 20171114
  2. DEXAMETHASONE DISODIUM PHOSPHATE [Concomitant]
     Active Substance: DEXAMETHASONE SODIUM PHOSPHATE
     Indication: PREMEDICATION
     Route: 042
     Dates: start: 20171023
  3. DEXAMETHASONE. [Concomitant]
     Active Substance: DEXAMETHASONE
     Indication: PREMEDICATION
     Route: 048
     Dates: start: 20171025
  4. TRASTUZUMAB. [Suspect]
     Active Substance: TRASTUZUMAB
     Dosage: MAINTAINANCE DOSE?NEXT DOSE 6 MG/KG OF TRASTUZUMAB ON 05/DEC/2017, 28/DEC/2017, 18/JAN/2018, 08/FEB/
     Route: 042
     Dates: start: 20171114
  5. DOCETAXEL. [Suspect]
     Active Substance: DOCETAXEL
     Indication: BREAST CANCER METASTATIC
     Dosage: NEXT DOSE 75 MG/M2 OF DOCETAXEL GIVEN ON 14/NOV/2017, 05/DEC/2017, 28/DEC/2017, 18/JAN/2018, 08/FEB/
     Route: 065
     Dates: start: 20171024
  6. PERTUZUMAB. [Suspect]
     Active Substance: PERTUZUMAB
     Indication: BREAST CANCER METASTATIC
     Dosage: LOADING DOSE
     Route: 065
     Dates: start: 20171024
  7. TOBRA [Concomitant]
     Indication: PROPHYLAXIS
     Dosage: NEXT DOSE 200 MG OF TOBRAMYCIN WAS GIVEN ON 22/NOV/2017, 14/DEC/2017, 04/JAN/2018, 25/JAN/2018, 29/M
     Route: 042
     Dates: start: 20171031, end: 20171101
  8. TRASTUZUMAB. [Suspect]
     Active Substance: TRASTUZUMAB
     Indication: BREAST CANCER METASTATIC
     Dosage: LOADING DOSE
     Route: 042
     Dates: start: 20171024
  9. CURAN [Concomitant]
     Active Substance: RANITIDINE HYDROCHLORIDE
     Indication: PREMEDICATION
     Route: 048
     Dates: start: 20171023
  10. CEFOBACTAM [Concomitant]
     Active Substance: CEFOPERAZONE SODIUM\SULBACTAM SODIUM
     Indication: PROPHYLAXIS
     Dosage: NEXT DOSE 1 G OF CEFOPERAZONE SODIUM/SULBACTUM SODIUM GIVEN ON 23/NOV/2017, 12/DEC/2017, 04/JAN/2018
     Route: 042
     Dates: start: 20171031, end: 20171101
  11. MACPERAN [Concomitant]
     Active Substance: METOCLOPRAMIDE HYDROCHLORIDE
     Indication: PREMEDICATION
     Route: 048
     Dates: start: 20171023
  12. BONALING-A [Concomitant]
     Active Substance: DIMENHYDRINATE
     Indication: PREMEDICATION
     Route: 048
     Dates: start: 20171023

REACTIONS (8)
  - Alanine aminotransferase increased [Recovered/Resolved]
  - Wound infection [Recovering/Resolving]
  - Nasopharyngitis [Recovered/Resolved]
  - Lymphoedema [Recovered/Resolved]
  - Diarrhoea [Recovered/Resolved]
  - Insomnia [Recovering/Resolving]
  - Jugular vein thrombosis [Recovering/Resolving]
  - Neutropenia [Recovered/Resolved]

NARRATIVE: CASE EVENT DATE: 20171031
